FAERS Safety Report 9058574 (Version 2)
Quarter: 2013Q1

REPORT INFORMATION
  Report Type: Spontaneous
  Country: JP (occurrence: JP)
  Receive Date: 20130211
  Receipt Date: 20130306
  Transmission Date: 20140127
  Serious: Yes (Other)
  Sender: FDA-Public Use
  Company Number: JP-JNJFOC-20121211480

PATIENT
  Age: 5 Decade
  Sex: Female

DRUGS (4)
  1. TRAMCET [Suspect]
     Indication: PAIN
     Dosage: 1DF X2 PER DAY(AFTER LUNCH AND BEFORE GOING TO BED.
     Route: 048
     Dates: start: 20121212, end: 20121217
  2. TRAMCET [Suspect]
     Indication: PAIN
     Dosage: 1 DF PER ONE DAY(BEFORE GOING TO BED)
     Route: 048
     Dates: start: 20121205, end: 20121211
  3. HYPEN [Concomitant]
     Indication: PRODUCT USED FOR UNKNOWN INDICATION
     Dosage: ONCE DAILY
     Route: 048
  4. REBAMIPIDE [Concomitant]
     Indication: PRODUCT USED FOR UNKNOWN INDICATION
     Route: 048

REACTIONS (1)
  - Drug-induced liver injury [Recovering/Resolving]
